FAERS Safety Report 6238576-4 (Version None)
Quarter: 2009Q2

REPORT INFORMATION
  Report Type: 
  Country: None (occurrence: None)
  Receive Date: 20090622
  Receipt Date: 20090615
  Transmission Date: 20091009
  Serious: Yes (Hospitalization)
  Sender: FDA-Public Use
  Company Number: US-ELI_LILLY_AND_COMPANY-US200906003426

PATIENT
  Sex: Female

DRUGS (2)
  1. HUMULIN 70/30 [Suspect]
  2. BYETTA [Concomitant]

REACTIONS (5)
  - ARTHROPATHY [None]
  - BACK DISORDER [None]
  - FALL [None]
  - PAIN [None]
  - STAPHYLOCOCCAL INFECTION [None]
